FAERS Safety Report 4882464-2 (Version None)
Quarter: 2005Q4

REPORT INFORMATION
  Report Type: 
  Country: None (occurrence: None)
  Receive Date: 20051201
  Receipt Date: 20050929
  Transmission Date: 20060501
  Serious: No
  Sender: FDA-Public Use
  Company Number: 2005PV002638

PATIENT
  Age: 42 Year
  Sex: Male
  Weight: 130.1823 kg

DRUGS (5)
  1. BYETTA [Suspect]
     Indication: DIABETES MELLITUS NON-INSULIN-DEPENDENT
     Dosage: 5 MCG;BID;SC
     Route: 058
     Dates: start: 20050915
  2. VYTORIN [Concomitant]
  3. GLUCOPHAGE [Concomitant]
  4. AVANDAMET [Concomitant]
  5. AVANDIA [Concomitant]

REACTIONS (2)
  - DRUG EFFECT DECREASED [None]
  - INJECTION SITE BRUISING [None]
